FAERS Safety Report 8097882-1 (Version None)
Quarter: 2012Q1

REPORT INFORMATION
  Report Type: 
  Country: None (occurrence: None)
  Receive Date: 20120128
  Receipt Date: 20110720
  Transmission Date: 20120608
  Serious: No
  Sender: FDA-Public Use
  Company Number: US-ABBOTT-11P-163-0840632-00

PATIENT
  Sex: Male

DRUGS (5)
  1. UNKNOWN PSYCHOTICS [Concomitant]
     Indication: SCHIZOPHRENIA
  2. HUMIRA [Suspect]
     Indication: CROHN'S DISEASE
     Route: 058
     Dates: start: 20101022
  3. UNKNOWN MEDICATIONS [Concomitant]
     Indication: SCHIZOPHRENIA
  4. LORTAB [Suspect]
     Indication: BACK PAIN
     Dosage: TWO PER DAY AS NEEDED
     Route: 048
     Dates: start: 20110301
  5. HUMIRA [Suspect]
     Indication: ANKYLOSING SPONDYLITIS

REACTIONS (4)
  - DRUG INEFFECTIVE [None]
  - SCHIZOPHRENIA [None]
  - BACK PAIN [None]
  - MUSCULOSKELETAL STIFFNESS [None]
